FAERS Safety Report 7618295-X (Version None)
Quarter: 2011Q3

REPORT INFORMATION
  Report Type: 
  Country: None (occurrence: None)
  Receive Date: 20110718
  Receipt Date: 20110601
  Transmission Date: 20111222
  Serious: Yes (Life-Threatening, Hospitalization)
  Sender: FDA-Public Use
  Company Number: GB-ROCHE-778779

PATIENT
  Sex: Female
  Weight: 56 kg

DRUGS (2)
  1. XELODA [Suspect]
     Indication: COLORECTAL CANCER
     Dosage: REPORTED AS BD X 14/21 DAYS
     Route: 048
     Dates: start: 20110204, end: 20110204
  2. OXALIPLATIN [Suspect]
     Indication: COLORECTAL CANCER
     Dosage: EVERY 3 WEEKS
     Route: 042
     Dates: start: 20110204, end: 20110204

REACTIONS (4)
  - DIARRHOEA [None]
  - DEHYDRATION [None]
  - COLITIS [None]
  - ORGAN FAILURE [None]
